FAERS Safety Report 6299613-4 (Version None)
Quarter: 2009Q3

REPORT INFORMATION
  Report Type: 
  Country: None (occurrence: None)
  Receive Date: 20090806
  Receipt Date: 20090727
  Transmission Date: 20100115
  Serious: Yes (Hospitalization)
  Sender: FDA-Public Use
  Company Number: TR-ELI_LILLY_AND_COMPANY-TR200907006025

PATIENT
  Sex: Female

DRUGS (2)
  1. HUMULIN R [Suspect]
     Indication: GESTATIONAL DIABETES
     Dosage: 13 IU, EACH MORNING
     Route: 064
     Dates: start: 20070101
  2. HUMULIN N [Suspect]
     Indication: GESTATIONAL DIABETES
     Dosage: 10 IU, EACH EVENING
     Route: 064
     Dates: start: 20070101

REACTIONS (3)
  - DRUG EXPOSURE DURING PREGNANCY [None]
  - INFECTION [None]
  - JAUNDICE [None]
